FAERS Safety Report 12944574 (Version 1)
Quarter: 2016Q4

REPORT INFORMATION
  Report Type: Other
  Country: JM (occurrence: JP)
  Receive Date: 20161115
  Receipt Date: 20161115
  Transmission Date: 20170207
  Serious: Yes (Hospitalization, Other)
  Sender: FDA-Public Use
  Company Number: JP-WARNER CHILCOTT, LLC-1059566

PATIENT
  Age: 70 Year
  Sex: Female

DRUGS (6)
  1. INFLIXIMAB [Concomitant]
     Active Substance: INFLIXIMAB
  2. SIMPONI [Concomitant]
     Active Substance: GOLIMUMAB
  3. METHOTREXATE (METHOTREXATE SODIUM) [Concomitant]
     Active Substance: METHOTREXATE SODIUM
  4. DIDRONEL [Suspect]
     Active Substance: ETIDRONATE DISODIUM
     Route: 048
  5. ALENDRONATE [Concomitant]
     Active Substance: ALENDRONATE SODIUM
  6. PREDNISOLONE. [Concomitant]
     Active Substance: PREDNISOLONE

REACTIONS (4)
  - Atypical femur fracture [Recovered/Resolved]
  - Fall [Recovered/Resolved]
  - Bone pain [Recovered/Resolved]
  - Femur fracture [Recovered/Resolved]
